FAERS Safety Report 14916482 (Version 3)
Quarter: 2025Q1

REPORT INFORMATION
  Report Type: Report from Study
  Country: ES (occurrence: ES)
  Receive Date: 20180519
  Receipt Date: 20250311
  Transmission Date: 20250408
  Serious: Yes (Other)
  Sender: AUROBINDO
  Company Number: ES-AUROBINDO-AUR-APL-2018-026943

PATIENT
  Sex: Female

DRUGS (11)
  1. CAPECITABINE [Suspect]
     Active Substance: CAPECITABINE
     Indication: Breast cancer metastatic
     Route: 065
     Dates: start: 201401
  2. IBUPROFEN [Suspect]
     Active Substance: IBUPROFEN
     Indication: Product used for unknown indication
     Route: 065
  3. VINORELBINE [Suspect]
     Active Substance: VINORELBINE TARTRATE
     Indication: Breast cancer metastatic
     Route: 048
     Dates: start: 201401
  4. DOXORUBICIN [Suspect]
     Active Substance: DOXORUBICIN
     Indication: Breast cancer metastatic
     Route: 065
     Dates: start: 201505
  5. BEVACIZUMAB [Suspect]
     Active Substance: BEVACIZUMAB
     Indication: Breast cancer metastatic
     Route: 065
     Dates: start: 201011
  6. ERIBULIN [Suspect]
     Active Substance: ERIBULIN
     Indication: Breast cancer metastatic
     Route: 065
     Dates: start: 201409, end: 201505
  7. PACLITAXEL [Concomitant]
     Active Substance: PACLITAXEL
     Indication: Breast cancer metastatic
     Route: 065
     Dates: start: 201302
  8. EXEMESTANE [Concomitant]
     Active Substance: EXEMESTANE
     Indication: Breast cancer metastatic
     Route: 065
     Dates: start: 201309
  9. DOCETAXEL [Concomitant]
     Active Substance: DOCETAXEL
     Indication: Breast cancer metastatic
     Route: 065
     Dates: start: 201011
  10. FULVESTRANT [Concomitant]
     Active Substance: FULVESTRANT
     Indication: Breast cancer metastatic
     Route: 065
     Dates: start: 201104
  11. GEMCITABINE [Concomitant]
     Active Substance: GEMCITABINE
     Indication: Breast cancer metastatic
     Route: 065
     Dates: start: 201302

REACTIONS (5)
  - Palmar-plantar erythrodysaesthesia syndrome [Unknown]
  - Haematotoxicity [Unknown]
  - Cutaneous vasculitis [Unknown]
  - Mucosal inflammation [Unknown]
  - Skin disorder [Unknown]

NARRATIVE: CASE EVENT DATE: 20130301
